FAERS Safety Report 14123546 (Version 4)
Quarter: 2018Q1

REPORT INFORMATION
  Report Type: Report from Study
  Country: US (occurrence: US)
  Receive Date: 20171025
  Receipt Date: 20180212
  Transmission Date: 20180508
  Serious: Yes (Other)
  Sender: FDA-Public Use
  Company Number: US-ALEXION PHARMACEUTICALS INC.-A201711535

PATIENT
  Sex: Male

DRUGS (2)
  1. STRENSIQ [Suspect]
     Active Substance: ASFOTASE ALFA
     Dosage: UNK, UNK
     Route: 065
  2. STRENSIQ [Suspect]
     Active Substance: ASFOTASE ALFA
     Indication: PRODUCT USED FOR UNKNOWN INDICATION
     Dosage: UNK, UNK
     Route: 065

REACTIONS (17)
  - Pain [Unknown]
  - Addison^s disease [Unknown]
  - Nephrocalcinosis [Unknown]
  - Complex regional pain syndrome [Unknown]
  - Adrenal disorder [Unknown]
  - Bone metabolism disorder [Unknown]
  - Hypercalciuria [Unknown]
  - Fatigue [Unknown]
  - Nausea [Unknown]
  - Metatarsalgia [Unknown]
  - Mental impairment [Unknown]
  - Nephrolithiasis [Unknown]
  - Blood creatinine increased [Unknown]
  - Renal impairment [Unknown]
  - Muscular weakness [Unknown]
  - Hormone level abnormal [Unknown]
  - Osteocalcin decreased [Unknown]
